FAERS Safety Report 8307885-7 (Version None)
Quarter: 2012Q2

REPORT INFORMATION
  Report Type: 
  Country: None (occurrence: None)
  Receive Date: 20120424
  Receipt Date: 20120412
  Transmission Date: 20120825
  Serious: Yes (Hospitalization, Other)
  Sender: FDA-Public Use
  Company Number: CH-AMGEN-CHESP2011068133

PATIENT
  Age: 53 Year
  Sex: Female
  Weight: 78 kg

DRUGS (4)
  1. METHOTREXATE [Concomitant]
     Dosage: 20 MG, WEEKLY
     Route: 058
     Dates: start: 20100201, end: 20110801
  2. LEVOTHYROXINE SODIUM [Concomitant]
     Dosage: UNK
     Route: 048
     Dates: start: 20080201
  3. SULFASALAZINE [Concomitant]
     Dosage: 2 G, 2X/DAY
     Route: 048
     Dates: start: 20100701, end: 20110101
  4. ENBREL [Suspect]
     Indication: POLYARTHRITIS
     Dosage: 50 MG, WEEKLY
     Route: 058
     Dates: start: 20110201, end: 20111201

REACTIONS (2)
  - BREAST CANCER [None]
  - MALIGNANT MELANOMA [None]
